FAERS Safety Report 4421650-2 (Version None)
Quarter: 2004Q3

REPORT INFORMATION
  Report Type: 
  Country: None (occurrence: None)
  Receive Date: 20040809
  Receipt Date: 20040809
  Transmission Date: 20050211
  Serious: No
  Sender: FDA-Public Use
  Company Number: None

PATIENT
  Age: 70 Year
  Sex: Female
  Weight: 84 kg

DRUGS (3)
  1. LOPERAMIDE HCL [Suspect]
     Indication: DIARRHOEA
     Dosage: 2 MG QID PRN
     Dates: start: 20040706, end: 20040726
  2. PRIMAXIN [Suspect]
     Dosage: 500 Q8 H IV
     Route: 042
     Dates: start: 20040709, end: 20040721
  3. ZYVOX [Suspect]
     Indication: CHOLECYSTITIS INFECTIVE
     Dosage: 600 PO BID
     Route: 048
     Dates: start: 20040709, end: 20040727

REACTIONS (2)
  - LEUKOPENIA [None]
  - THROMBOCYTOPENIA [None]
